FAERS Safety Report 14271166 (Version 1)
Quarter: 2017Q4

REPORT INFORMATION
  Report Type: Spontaneous
  Country: PT (occurrence: PT)
  Receive Date: 20171211
  Receipt Date: 20171211
  Transmission Date: 20180321
  Serious: Yes (Disabling, Other)
  Sender: FDA-Public Use
  Company Number: PT-MYLANLABS-2017M1076458

PATIENT
  Age: 69 Year
  Sex: Male
  Weight: 60 kg

DRUGS (5)
  1. IRBESARTANA + HIDROCLOROTIAZIDA [Concomitant]
     Dosage: 300/12.5
  2. QUETIAPINA MYLAN [Suspect]
     Active Substance: QUETIAPINE
     Indication: PRODUCT USED FOR UNKNOWN INDICATION
     Route: 048
     Dates: start: 20171021
  3. ESCITALOPRAM [Concomitant]
     Active Substance: ESCITALOPRAM OXALATE
     Route: 048
  4. RILMENIDINE [Concomitant]
     Active Substance: RILMENIDINE
  5. TRAZODONE [Concomitant]
     Active Substance: TRAZODONE HYDROCHLORIDE
     Route: 048

REACTIONS (2)
  - Cerebrovascular accident [Recovering/Resolving]
  - Muscle rigidity [Recovering/Resolving]

NARRATIVE: CASE EVENT DATE: 201710
